FAERS Safety Report 5874190-8 (Version None)
Quarter: 2008Q3

REPORT INFORMATION
  Report Type: 
  Country: None (occurrence: None)
  Receive Date: 20080903
  Receipt Date: 20080404
  Transmission Date: 20090109
  Serious: Yes (Hospitalization)
  Sender: FDA-Public Use
  Company Number: 000#5#2008-00072

PATIENT
  Age: 80 Year
  Sex: Male

DRUGS (30)
  1. ROTIGOTINE-40CM? -18MG-PATCH (ROTIGOTINE) [Suspect]
     Indication: PARKINSON'S DISEASE
     Dosage: 8 MG/24H (10 MG/24H 1 IN 1 DAY (S)) TRANSDERMAL
     Route: 062
     Dates: start: 20080228
  2. LEVODOPA, CARBIDOPA (CARBIDOPA, LEVODOPA) [Concomitant]
  3. ACETYLSALICYLIC ACID SRT [Concomitant]
  4. SIMVASTATIN [Concomitant]
  5. CEFAZOLIN [Concomitant]
  6. ROPIVACAINE (ROPIVACAINE) [Concomitant]
  7. FENTANYL-100 [Concomitant]
  8. PROPOFOL [Concomitant]
  9. EPHEDRINE SUL CAP [Concomitant]
  10. PHENYLEPHRINE (PHENYLEPHRINE) [Concomitant]
  11. GLUCOSE [Concomitant]
  12. SODIUM CHLORIDE 0.9% [Concomitant]
  13. ACETAMINOPHEN [Concomitant]
  14. ACETYLSALICYLIC ACID SRT [Concomitant]
  15. CODEINE PHOSPHATE (CODEINE PHOSPHATE) [Concomitant]
  16. ENOXAPARIN SODIUM [Concomitant]
  17. CALCIUM CARBONATE (CALCIUM CARBONATE) [Concomitant]
  18. COLECALCIFEROL (COLECALCIFEROL) [Concomitant]
  19. DOCUSATE (DOCUSATE) [Concomitant]
  20. SENNOSIDE A+B (SENNOSIDE A+B) [Concomitant]
  21. MORPHINE [Concomitant]
  22. CYCLIZINE (CYCLIZINE) [Concomitant]
  23. OXYCODONE HCL [Concomitant]
  24. LACTULOSE [Concomitant]
  25. ALENDRONATE SODIUM [Concomitant]
  26. GLYCERIN (GLYCEROL) [Concomitant]
  27. OXYCODONE HCL [Concomitant]
  28. KIWI CRUSH [Concomitant]
  29. AMITRIPTLINE HYDROCHLORIDE TAB [Concomitant]
  30. PROCHLORPERAZINE MALEATE [Concomitant]

REACTIONS (10)
  - BLOOD PRESSURE INCREASED [None]
  - COUGH [None]
  - FALL [None]
  - FEMORAL NECK FRACTURE [None]
  - HYPERHIDROSIS [None]
  - PHANTOM PAIN [None]
  - SALIVARY HYPERSECRETION [None]
  - SUPRAVENTRICULAR TACHYCARDIA [None]
  - SYNCOPE VASOVAGAL [None]
  - VOMITING [None]
